FAERS Safety Report 12556531 (Version 3)
Quarter: 2016Q3

REPORT INFORMATION
  Report Type: Spontaneous
  Country: GB (occurrence: GB)
  Receive Date: 20160714
  Receipt Date: 20160914
  Transmission Date: 20161109
  Serious: Yes (Hospitalization, Other)
  Sender: FDA-Public Use
  Company Number: GB-TAKEDA-2016MPI006302

PATIENT
  Age: 68 Year
  Sex: Male
  Weight: 87 kg

DRUGS (7)
  1. VELCADE [Suspect]
     Active Substance: BORTEZOMIB
     Indication: PLASMA CELL MYELOMA
     Dosage: 2.5 MG, UNK
     Route: 058
     Dates: start: 201602, end: 20160524
  2. CYCLOPHOSPHAMIDE. [Concomitant]
     Active Substance: CYCLOPHOSPHAMIDE
     Indication: PLASMA CELL MYELOMA
     Dosage: 500 MG, 1/WEEK
     Route: 048
     Dates: start: 201603, end: 20160524
  3. OMEPRAZOLE. [Concomitant]
     Active Substance: OMEPRAZOLE
     Indication: PROPHYLAXIS
     Dosage: 20 MG, QD
     Route: 048
     Dates: start: 201602, end: 20160524
  4. ACICLOVIR [Concomitant]
     Active Substance: ACYCLOVIR
     Indication: PROPHYLAXIS
     Dosage: 400 MG, BID
     Route: 065
     Dates: start: 201602, end: 20160524
  5. COTRIMOXAZOLE [Concomitant]
     Active Substance: SULFAMETHOXAZOLE\TRIMETHOPRIM
     Indication: PROPHYLAXIS
     Dosage: 960 MG, BID
     Route: 048
     Dates: start: 201602, end: 20160524
  6. DEXAMETHASONE. [Concomitant]
     Active Substance: DEXAMETHASONE
     Indication: PLASMA CELL MYELOMA
     Dosage: 20 MG, UNK
     Route: 065
     Dates: start: 201602, end: 20160524
  7. FLUCONAZOLE. [Concomitant]
     Active Substance: FLUCONAZOLE
     Indication: PROPHYLAXIS
     Dosage: 50 MG, QD
     Route: 048
     Dates: start: 201602, end: 20160524

REACTIONS (5)
  - Monoclonal immunoglobulin present [Unknown]
  - Asthma [Recovered/Resolved]
  - Neuropathy peripheral [Unknown]
  - Pneumonia [Unknown]
  - Haemophilus infection [Recovered/Resolved]

NARRATIVE: CASE EVENT DATE: 20160424
